FAERS Safety Report 19113029 (Version 2)
Quarter: 2022Q1

REPORT INFORMATION
  Report Type: Spontaneous
  Country: US (occurrence: None)
  Receive Date: 20210408
  Receipt Date: 20220203
  Transmission Date: 20220423
  Serious: Yes (Other)
  Sender: FDA-Public Use
  Company Number: 2021A247571

PATIENT
  Sex: Female
  Weight: 56.7 kg

DRUGS (24)
  1. NEXIUM [Suspect]
     Active Substance: ESOMEPRAZOLE MAGNESIUM
     Indication: Gastrooesophageal reflux disease
     Route: 048
     Dates: start: 2008, end: 2011
  2. DOCQLACE [Concomitant]
     Active Substance: DOCUSATE SODIUM
  3. LEVETIRACETAM [Concomitant]
     Active Substance: LEVETIRACETAM
  4. BUTALBITAL [Concomitant]
     Active Substance: BUTALBITAL
  5. GABAPENTIN [Concomitant]
     Active Substance: GABAPENTIN
  6. VOLTAREN [Concomitant]
     Active Substance: DICLOFENAC SODIUM
  7. MITRAZEPINE [Concomitant]
  8. PROAIR HFA [Concomitant]
     Active Substance: ALBUTEROL SULFATE
  9. IPRATRPIUM [Concomitant]
  10. FLOVENT [Concomitant]
     Active Substance: FLUTICASONE PROPIONATE
  11. TRIAMCINOLONE [Concomitant]
     Active Substance: TRIAMCINOLONE
  12. VITAMIN D [Concomitant]
     Active Substance: VITAMIN D NOS
  13. NIMOTOP [Concomitant]
     Active Substance: NIMODIPINE
  14. COMBIVENT [Concomitant]
     Active Substance: ALBUTEROL SULFATE\IPRATROPIUM BROMIDE
  15. ATROVENT [Concomitant]
     Active Substance: IPRATROPIUM BROMIDE
  16. DUONEB [Concomitant]
     Active Substance: ALBUTEROL SULFATE\IPRATROPIUM BROMIDE
  17. PERCOCET [Concomitant]
     Active Substance: ACETAMINOPHEN\OXYCODONE HYDROCHLORIDE
  18. LEXAPRO [Concomitant]
     Active Substance: ESCITALOPRAM OXALATE
  19. COLACE [Concomitant]
     Active Substance: DOCUSATE SODIUM
  20. KEPPRA [Concomitant]
     Active Substance: LEVETIRACETAM
  21. ONDANSETRON [Concomitant]
     Active Substance: ONDANSETRON
  22. GUAIFENESIN [Concomitant]
     Active Substance: GUAIFENESIN
  23. XYLOCAIN [Concomitant]
  24. CHLORPHENRAMINE [Concomitant]

REACTIONS (4)
  - Acute kidney injury [Not Recovered/Not Resolved]
  - Chronic kidney disease [Not Recovered/Not Resolved]
  - Renal failure [Unknown]
  - Rebound acid hypersecretion [Unknown]
